FAERS Safety Report 5835955-1 (Version None)
Quarter: 2008Q3

REPORT INFORMATION
  Report Type: 
  Country: None (occurrence: None)
  Receive Date: 20080805
  Receipt Date: 20080722
  Transmission Date: 20090109
  Serious: Yes (Other)
  Sender: FDA-Public Use
  Company Number: 2008S1012868

PATIENT
  Age: 23 Year
  Sex: Male

DRUGS (2)
  1. OMEPRAZOLE [Suspect]
     Indication: GASTRITIS
     Dosage: 20 MG; ORAL
     Route: 048
     Dates: start: 20080705, end: 20080707
  2. ACETAMINOPHEN [Concomitant]

REACTIONS (2)
  - RASH [None]
  - THROAT TIGHTNESS [None]
